FAERS Safety Report 12566410 (Version 1)
Quarter: 2016Q3

REPORT INFORMATION
  Report Type: Spontaneous
  Country: CZ (occurrence: CZ)
  Receive Date: 20160718
  Receipt Date: 20160718
  Transmission Date: 20161109
  Serious: Yes (Other)
  Sender: FDA-Public Use
  Company Number: CZ-ELI_LILLY_AND_COMPANY-CZ201607002725

PATIENT
  Age: 54 Year
  Sex: Female

DRUGS (1)
  1. ERBITUX [Suspect]
     Active Substance: CETUXIMAB
     Indication: COLORECTAL CANCER
     Dosage: 500 MG/M2, 2/M
     Route: 065
     Dates: start: 20160108

REACTIONS (7)
  - Fatigue [Recovered/Resolved]
  - Off label use [Unknown]
  - Haematotoxicity [Recovered/Resolved]
  - Subileus [Unknown]
  - Gastrointestinal toxicity [Recovered/Resolved]
  - Abdominal pain [Unknown]
  - Hypomagnesaemia [Not Recovered/Not Resolved]

NARRATIVE: CASE EVENT DATE: 2016
